FAERS Safety Report 5573604-0 (Version None)
Quarter: 2007Q4

REPORT INFORMATION
  Report Type: 
  Country: None (occurrence: None)
  Receive Date: 20071226
  Receipt Date: 20071212
  Transmission Date: 20080405
  Serious: Yes (Other)
  Sender: FDA-Public Use
  Company Number: US-BAYER-US-2006-018363

PATIENT
  Age: 63 Year
  Sex: Female
  Weight: 66 kg

DRUGS (9)
  1. CLIMARA [Suspect]
     Indication: HORMONE REPLACEMENT THERAPY
     Route: 062
     Dates: start: 19960101, end: 20020101
  2. PREMARIN [Suspect]
     Indication: HORMONE REPLACEMENT THERAPY
     Dates: start: 19860101, end: 19930101
  3. PROVERA [Suspect]
     Indication: HORMONE REPLACEMENT THERAPY
     Dates: start: 19860101, end: 20020101
  4. MENEST [Suspect]
     Indication: HORMONE REPLACEMENT THERAPY
     Dates: start: 19940101, end: 19950101
  5. MEDROXYPROGESTERONE ACETATE [Suspect]
     Indication: HORMONE REPLACEMENT THERAPY
     Dates: start: 19860101, end: 20020101
  6. ESTRADERM [Suspect]
     Indication: HORMONE REPLACEMENT THERAPY
     Route: 062
     Dates: start: 19950915
  7. COMBIPATCH [Suspect]
     Indication: HORMONE REPLACEMENT THERAPY
     Dates: start: 19990413
  8. IBUPROFEN [Concomitant]
     Route: 048
  9. MEDROL [Concomitant]
     Indication: ADVERSE DRUG REACTION
     Route: 048
     Dates: start: 19960314

REACTIONS (5)
  - ARTERIOSCLEROSIS [None]
  - BONE DENSITY DECREASED [None]
  - BREAST CANCER FEMALE [None]
  - FIBROCYSTIC BREAST DISEASE [None]
  - UTERINE LEIOMYOMA [None]
